FAERS Safety Report 7521557-8 (Version None)
Quarter: 2011Q2

REPORT INFORMATION
  Report Type: 
  Country: None (occurrence: None)
  Receive Date: 20110603
  Receipt Date: 20110531
  Transmission Date: 20111010
  Serious: No
  Sender: FDA-Public Use
  Company Number: US-PFIZER INC-2011089062

PATIENT
  Sex: Female
  Weight: 63 kg

DRUGS (4)
  1. TRAZODONE [Concomitant]
     Dosage: 50 MG, HS (AT BEDTIME)
  2. PRISTIQ [Suspect]
     Indication: MAJOR DEPRESSION
     Dosage: 50 MG, 1X/DAY
     Route: 048
     Dates: start: 20100501
  3. PRILOSEC [Concomitant]
     Indication: GASTROOESOPHAGEAL REFLUX DISEASE
     Dosage: 20 QD
  4. VALIUM [Concomitant]
     Indication: TREMOR
     Dosage: 10 MG, 3X/DAY

REACTIONS (4)
  - ABDOMINAL PAIN UPPER [None]
  - FLATULENCE [None]
  - CHOKING SENSATION [None]
  - INSOMNIA [None]
